FAERS Safety Report 5719374-4 (Version None)
Quarter: 2008Q2

REPORT INFORMATION
  Report Type: 
  Country: None (occurrence: None)
  Receive Date: 20080428
  Receipt Date: 20080421
  Transmission Date: 20081010
  Serious: Yes (Other)
  Sender: FDA-Public Use
  Company Number: B0517485A

PATIENT
  Age: 50 Year
  Sex: Male

DRUGS (1)
  1. NICORETTE [Suspect]
     Route: 060
     Dates: start: 20060101

REACTIONS (1)
  - DEPENDENCE [None]
